FAERS Safety Report 8830304 (Version 1)
Quarter: 2012Q4

REPORT INFORMATION
  Report Type: 
  Country: ES (occurrence: ES)
  Receive Date: 20121009
  Receipt Date: 20121009
  Transmission Date: 20130627
  Serious: Yes (Other)
  Sender: FDA-Public Use
  Company Number: ES-PFIZER INC-2012248448

PATIENT
  Age: 66 Year
  Sex: Female

DRUGS (4)
  1. TAZOCEL [Suspect]
     Indication: SEPSIS
     Dosage: UNK
     Route: 065
     Dates: start: 20111109, end: 20111109
  2. OMEPRAZOLE [Concomitant]
     Dosage: 20 mg, UNK
  3. PARACETAMOL [Concomitant]
     Dosage: UNK
     Dates: start: 20111109
  4. NORADRENALINE [Concomitant]

REACTIONS (1)
  - Angioedema [Recovered/Resolved]
